FAERS Safety Report 8000846-7 (Version None)
Quarter: 2011Q4

REPORT INFORMATION
  Report Type: 
  Country: None (occurrence: None)
  Receive Date: 20111222
  Receipt Date: 20110506
  Transmission Date: 20120403
  Serious: No
  Sender: FDA-Public Use
  Company Number: US-VIIV HEALTHCARE LIMITED-A0926395A

PATIENT
  Age: 77 Year
  Sex: Male

DRUGS (1)
  1. TRIZIVIR [Suspect]
     Indication: HIV INFECTION
     Route: 048

REACTIONS (1)
  - LIPODYSTROPHY ACQUIRED [None]
